FAERS Safety Report 18705470 (Version 1)
Quarter: 2021Q1

REPORT INFORMATION
  Report Type: Spontaneous
  Country: US (occurrence: US)
  Receive Date: 20210106
  Receipt Date: 20210106
  Transmission Date: 20210419
  Serious: No
  Sender: FDA-Public Use
  Company Number: US-BIOVITRUM-2021US0088

PATIENT
  Sex: Female
  Weight: 8 kg

DRUGS (6)
  1. FAMOTIDINE. [Concomitant]
     Active Substance: FAMOTIDINE
  2. NYSTATIN. [Concomitant]
     Active Substance: NYSTATIN
  3. POTASSIUM CHLORIDE. [Concomitant]
     Active Substance: POTASSIUM CHLORIDE
  4. ERYTHROMYCIN ETHYLSUCC [Concomitant]
  5. SYNAGIS [Suspect]
     Active Substance: PALIVIZUMAB
     Indication: PRODUCT USED FOR UNKNOWN INDICATION
     Route: 030
  6. EPINEPHRINE HCL [Concomitant]
     Active Substance: EPINEPHRINE

REACTIONS (1)
  - Weight decreased [Unknown]
